FAERS Safety Report 8007830-8 (Version None)
Quarter: 2011Q4

REPORT INFORMATION
  Report Type: 
  Country: None (occurrence: None)
  Receive Date: 20111227
  Receipt Date: 20111221
  Transmission Date: 20120403
  Serious: Yes (Hospitalization)
  Sender: FDA-Public Use
  Company Number: US-B.I. PHARMACEUTICALS,INC./RIDGEFIELD-2011-BP-26814BP

PATIENT
  Age: 72 Year
  Sex: Male

DRUGS (6)
  1. ATENOLOL [Concomitant]
     Indication: HYPERTENSION
     Dosage: 25 MG
  2. LASIX [Concomitant]
     Indication: HYPERTENSION
     Dosage: 20 MG
  3. LIPITOR [Concomitant]
     Indication: HYPERLIPIDAEMIA
     Dosage: 20 MG
  4. QVAR 40 [Concomitant]
     Indication: ASTHMA
     Dosage: 160 MCG
  5. AXID [Concomitant]
     Indication: GASTROOESOPHAGEAL REFLUX DISEASE
     Dosage: 300 UNK
  6. PRADAXA [Suspect]
     Indication: ATRIAL FIBRILLATION
     Dosage: 300 MG
     Route: 048
     Dates: start: 20110801, end: 20111001

REACTIONS (4)
  - HAEMATURIA [None]
  - ANAEMIA [None]
  - ASTHENIA [None]
  - MYALGIA [None]
